FAERS Safety Report 4435529-3 (Version None)
Quarter: 2004Q3

REPORT INFORMATION
  Report Type: 
  Country: None (occurrence: None)
  Receive Date: 20040827
  Receipt Date: 20040802
  Transmission Date: 20050211
  Serious: Yes (Other)
  Sender: FDA-Public Use
  Company Number: US-MERCK-0408USA00182

PATIENT
  Age: 81 Year
  Sex: Male
  Weight: 73 kg

DRUGS (5)
  1. ALLOPURINOL [Concomitant]
     Indication: GOUT
     Route: 048
     Dates: start: 20010701, end: 20040701
  2. VASOTEC [Suspect]
     Route: 065
     Dates: start: 20010101, end: 20020101
  3. PRINZIDE [Suspect]
     Indication: HYPERTENSION
     Route: 048
     Dates: start: 20020101, end: 20040701
  4. LEVOTHROID [Concomitant]
     Indication: RADIOTHERAPY
     Route: 048
     Dates: start: 19890101
  5. VITAMINS (UNSPECIFIED) [Concomitant]
     Route: 065

REACTIONS (4)
  - BRADYCARDIA [None]
  - CARDIAC OUTPUT DECREASED [None]
  - DIZZINESS POSTURAL [None]
  - EXTRASYSTOLES [None]
